FAERS Safety Report 14852378 (Version 1)
Quarter: 2018Q2

REPORT INFORMATION
  Report Type: Spontaneous
  Country: US (occurrence: US)
  Receive Date: 20180507
  Receipt Date: 20180507
  Transmission Date: 20180711
  Serious: Yes (Other)
  Sender: FDA-Public Use
  Company Number: US-PFIZER INC-2018184328

PATIENT
  Age: 24 Year
  Sex: Female
  Weight: 44 kg

DRUGS (1)
  1. XALKORI [Suspect]
     Active Substance: CRIZOTINIB
     Indication: CONNECTIVE TISSUE NEOPLASM
     Dosage: UNK
     Route: 048
     Dates: start: 20180228

REACTIONS (2)
  - Product use in unapproved indication [Unknown]
  - Vomiting [Not Recovered/Not Resolved]
